FAERS Safety Report 6985677-9 (Version None)
Quarter: 2010Q3

REPORT INFORMATION
  Report Type: 
  Country: None (occurrence: None)
  Receive Date: 20100915
  Receipt Date: 20100907
  Transmission Date: 20110219
  Serious: Yes (Other)
  Sender: FDA-Public Use
  Company Number: US-WYE-H16845810

PATIENT
  Sex: Female

DRUGS (7)
  1. EFFEXOR XR [Suspect]
     Indication: DEPRESSION
     Dates: start: 19980101, end: 20100701
  2. EFFEXOR XR [Suspect]
     Indication: BIPOLAR I DISORDER
     Dates: start: 20100701, end: 20100801
  3. VENTOLIN [Concomitant]
     Dosage: UNKNOWN DOSE FROM MDI AS NEEDED
  4. XANAX [Concomitant]
     Dosage: 1 MG, AS NEEDED
  5. ULTRAM [Concomitant]
     Dosage: 50 MG, AS NEEDED
  6. SEROQUEL [Concomitant]
     Dates: end: 20100101
  7. LAMICTAL [Concomitant]
     Dates: end: 20090101

REACTIONS (12)
  - ANXIETY [None]
  - ASTHENIA [None]
  - BALANCE DISORDER [None]
  - DEPRESSION [None]
  - DIZZINESS [None]
  - DRUG WITHDRAWAL SYNDROME [None]
  - HEADACHE [None]
  - INSOMNIA [None]
  - MENTAL IMPAIRMENT [None]
  - NAUSEA [None]
  - PARAESTHESIA [None]
  - WEIGHT INCREASED [None]
